FAERS Safety Report 5716499-4 (Version None)
Quarter: 2008Q2

REPORT INFORMATION
  Report Type: 
  Country: None (occurrence: None)
  Receive Date: 20080424
  Receipt Date: 20080410
  Transmission Date: 20081010
  Serious: Yes (Life-Threatening, Hospitalization, Other)
  Sender: FDA-Public Use
  Company Number: US-BAUSCH-2008BL001619

PATIENT
  Age: 67 Year
  Sex: Female

DRUGS (6)
  1. CIPROFLOXACIN [Suspect]
     Indication: URINARY TRACT INFECTION
     Route: 048
  2. FUROSEMIDE [Concomitant]
     Indication: CARDIAC FAILURE CONGESTIVE
  3. LISINOPRIL [Concomitant]
     Indication: CARDIAC FAILURE CONGESTIVE
  4. AMIODARONE HCL [Concomitant]
     Route: 048
  5. DIGOXIN [Concomitant]
     Indication: ARRHYTHMIA
     Route: 048
  6. WARFARIN SODIUM [Concomitant]

REACTIONS (2)
  - BLOOD POTASSIUM INCREASED [None]
  - TORSADE DE POINTES [None]
